FAERS Safety Report 25140389 (Version 1)
Quarter: 2025Q1

REPORT INFORMATION
  Report Type: Spontaneous
  Country: US (occurrence: None)
  Receive Date: 20250328
  Receipt Date: 20250328
  Transmission Date: 20250409
  Serious: Yes (Death, Hospitalization)
  Sender: FDA-CTU
  Company Number: None

PATIENT
  Age: 90 Year
  Sex: Male
  Weight: 83 kg

DRUGS (2)
  1. ELIQUIS [Suspect]
     Active Substance: APIXABAN
     Indication: Deep vein thrombosis
     Dosage: 5.00 MG TWICE A DAY ORAL ?
     Route: 048
     Dates: start: 20231121
  2. ASPIRIN [Suspect]
     Active Substance: ASPIRIN
     Indication: Anticoagulant therapy
     Dosage: 81.00 MG DAILY ORAL
     Route: 048
     Dates: start: 20231119

REACTIONS (5)
  - Confusional state [None]
  - Hypertensive emergency [None]
  - Mental status changes [None]
  - Subdural haemorrhage [None]
  - Fall [None]

NARRATIVE: CASE EVENT DATE: 20241217
